FAERS Safety Report 12865967 (Version 1)
Quarter: 2016Q4

REPORT INFORMATION
  Report Type: Report from Study
  Country: US (occurrence: US)
  Receive Date: 20161020
  Receipt Date: 20161020
  Transmission Date: 20170207
  Serious: Yes (Other)
  Sender: FDA-Public Use
  Company Number: US-AMGEN-USASL2016143904

PATIENT
  Age: 67 Year
  Sex: Female

DRUGS (2)
  1. ENBREL [Suspect]
     Active Substance: ETANERCEPT
     Indication: RHEUMATOID ARTHRITIS
     Dosage: UNK
     Route: 065
  2. PREDNISONE. [Concomitant]
     Active Substance: PREDNISONE
     Dosage: UNK

REACTIONS (10)
  - Urinary tract infection [Unknown]
  - Memory impairment [Unknown]
  - Colon operation [Unknown]
  - Fall [Unknown]
  - Joint effusion [Not Recovered/Not Resolved]
  - Headache [Unknown]
  - Joint swelling [Not Recovered/Not Resolved]
  - Bone disorder [Unknown]
  - Pain [Unknown]
  - Toe operation [Unknown]
